FAERS Safety Report 25251081 (Version 1)
Quarter: 2025Q2

REPORT INFORMATION
  Report Type: Spontaneous
  Country: FR (occurrence: FR)
  Receive Date: 20250429
  Receipt Date: 20250429
  Transmission Date: 20250717
  Serious: Yes (Other)
  Sender: TAKEDA
  Company Number: FR-TAKEDA-2025TUS040194

PATIENT
  Age: 30 Year
  Sex: Female

DRUGS (1)
  1. ENTYVIO [Suspect]
     Active Substance: VEDOLIZUMAB
     Indication: Product used for unknown indication

REACTIONS (3)
  - Pneumonia pseudomonal [Unknown]
  - Perineal infection [Unknown]
  - Herpes virus infection [Unknown]
